FAERS Safety Report 17428875 (Version 2)
Quarter: 2020Q1

REPORT INFORMATION
  Report Type: Spontaneous
  Country: US (occurrence: US)
  Receive Date: 20200218
  Receipt Date: 20200309
  Transmission Date: 20200409
  Serious: No
  Sender: FDA-Public Use
  Company Number: US-ASTRAZENECA-2020SE16301

PATIENT
  Sex: Male
  Weight: 139.3 kg

DRUGS (4)
  1. BYDUREON BCISE [Suspect]
     Active Substance: EXENATIDE
     Indication: TYPE 2 DIABETES MELLITUS
     Route: 058
     Dates: start: 201908
  2. METFORMIN [Concomitant]
     Active Substance: METFORMIN HYDROCHLORIDE
     Indication: DIABETES MELLITUS
     Dosage: 1000 TWO TIMES A DAY
     Route: 048
  3. TRESIBA [Concomitant]
     Active Substance: INSULIN DEGLUDEC
     Indication: DIABETES MELLITUS
     Dosage: 150USP UNITS TWO TIMES A DAY
  4. HUMULIN U 500 [Concomitant]
     Indication: DIABETES MELLITUS
     Dosage: 250USP UNITS THREE TIMES A DAY

REACTIONS (6)
  - Product dose omission [Unknown]
  - Diabetes mellitus inadequate control [Not Recovered/Not Resolved]
  - Injection site extravasation [Unknown]
  - Device malfunction [Unknown]
  - Frustration tolerance decreased [Unknown]
  - Incorrect dose administered by device [Unknown]
